FAERS Safety Report 16569963 (Version 1)
Quarter: 2019Q3

REPORT INFORMATION
  Report Type: Spontaneous
  Country: GB (occurrence: GB)
  Receive Date: 20190715
  Receipt Date: 20190715
  Transmission Date: 20191004
  Serious: Yes (Other)
  Sender: FDA-Public Use
  Company Number: GB-TEVA-2019-GB-1076601

PATIENT
  Age: 14 Year
  Sex: Male
  Weight: 52 kg

DRUGS (7)
  1. BENZOYL PEROXIDE. [Concomitant]
     Active Substance: BENZOYL PEROXIDE
     Dosage: 1 DOSAGE FORMS DAILY; APPLY AT NIGHT.
     Dates: start: 20170921
  2. MONTELUKAST [Suspect]
     Active Substance: MONTELUKAST SODIUM
     Route: 048
     Dates: start: 20130524
  3. MONTELUKAST [Suspect]
     Active Substance: MONTELUKAST SODIUM
     Dates: start: 201310, end: 201503
  4. SALBUTAMOL [Concomitant]
     Active Substance: ALBUTEROL
     Dosage: PUFFS.
     Dates: start: 20180612
  5. SERTRALINE [Concomitant]
     Active Substance: SERTRALINE HYDROCHLORIDE
     Dosage: EVERY DAY.
     Dates: start: 20181213
  6. MONTELUKAST [Suspect]
     Active Substance: MONTELUKAST SODIUM
     Dates: start: 20190614
  7. SERETIDE [Concomitant]
     Active Substance: FLUTICASONE PROPIONATE\SALMETEROL XINAFOATE
     Dosage: 2 DOSAGE FORMS DAILY; PUFF.
     Dates: start: 20180612

REACTIONS (6)
  - Anxiety [Unknown]
  - Nightmare [Unknown]
  - Depression [Unknown]
  - Loss of consciousness [Unknown]
  - Hallucination [Recovered/Resolved]
  - Personality change [Unknown]

NARRATIVE: CASE EVENT DATE: 201309
